FAERS Safety Report 4303533-1 (Version None)
Quarter: 2004Q1

REPORT INFORMATION
  Report Type: 
  Country: None (occurrence: None)
  Receive Date: 20040217
  Receipt Date: 20040202
  Transmission Date: 20041129
  Serious: Yes (Hospitalization)
  Sender: FDA-Public Use
  Company Number: 235169

PATIENT
  Age: 60 Year
  Sex: Male

DRUGS (1)
  1. NOVOSEVEN [Suspect]
     Indication: HAEMORRHAGE
     Dosage: 1.2 MG X 3 DOSES, INTRAVENOUS
     Route: 042
     Dates: start: 20031203, end: 20031203

REACTIONS (4)
  - DIALYSIS [None]
  - PROTHROMBIN TIME SHORTENED [None]
  - RENAL FAILURE [None]
  - SPLENECTOMY [None]
